FAERS Safety Report 22521629 (Version 3)
Quarter: 2023Q2

REPORT INFORMATION
  Report Type: Spontaneous
  Country: US (occurrence: US)
  Receive Date: 20230605
  Receipt Date: 20230615
  Transmission Date: 20230722
  Serious: No
  Sender: FDA-Public Use
  Company Number: US-BIOVITRUM-2023-US-011475

PATIENT

DRUGS (1)
  1. ANAKINRA [Suspect]
     Active Substance: ANAKINRA
     Indication: Hepatitis alcoholic
     Dosage: 100MG, DAILY
     Route: 058

REACTIONS (2)
  - Fungal infection [Unknown]
  - Off label use [Unknown]
